FAERS Safety Report 23971678 (Version 1)
Quarter: 2024Q2

REPORT INFORMATION
  Report Type: Spontaneous
  Country: US (occurrence: None)
  Receive Date: 20240612
  Receipt Date: 20240612
  Transmission Date: 20240716
  Serious: Yes (Hospitalization)
  Sender: FDA-Public Use
  Company Number: None

PATIENT
  Age: 53 Year
  Sex: Male

DRUGS (1)
  1. YESCARTA [Suspect]
     Active Substance: AXICABTAGENE CILOLEUCEL
     Indication: Diffuse large B-cell lymphoma
     Dates: start: 20240311, end: 20240311

REACTIONS (6)
  - Cytokine release syndrome [None]
  - Acute kidney injury [None]
  - Staphylococcal bacteraemia [None]
  - Pleural effusion [None]
  - Respiratory failure [None]
  - Shock [None]

NARRATIVE: CASE EVENT DATE: 20240316
